FAERS Safety Report 15408589 (Version 8)
Quarter: 2019Q2

REPORT INFORMATION
  Report Type: Report from Study
  Country: US (occurrence: US)
  Receive Date: 20180920
  Receipt Date: 20190530
  Transmission Date: 20190711
  Serious: Yes (Other)
  Sender: FDA-Public Use
  Company Number: PHHY2018US063138

PATIENT
  Sex: Female

DRUGS (38)
  1. JAKAFI [Suspect]
     Active Substance: RUXOLITINIB
     Dosage: 20 MG, QD
     Route: 065
     Dates: start: 201801
  2. JAKAFI [Suspect]
     Active Substance: RUXOLITINIB
     Dosage: 10 MG IN THE MORNING AND 5 MG IN THE EVENING
     Route: 065
  3. ANASTROZOLE. [Suspect]
     Active Substance: ANASTROZOLE
     Dosage: UNK
     Route: 065
     Dates: start: 20180718
  4. CYMBALTA [Concomitant]
     Active Substance: DULOXETINE HYDROCHLORIDE
     Indication: PRODUCT USED FOR UNKNOWN INDICATION
     Dosage: 60 MG, QD
     Route: 065
  5. TYLENOL EXTRA STRENGTH [Concomitant]
     Active Substance: ACETAMINOPHEN
     Indication: PRODUCT USED FOR UNKNOWN INDICATION
     Dosage: UNK, ONCE IN A WHILE
  6. HYDROCHLOROTHIAZIDE. [Concomitant]
     Active Substance: HYDROCHLOROTHIAZIDE
     Indication: PRODUCT USED FOR UNKNOWN INDICATION
     Dosage: 25 MG, UNK
     Route: 065
  7. MULTI VITAMIN [Concomitant]
     Active Substance: VITAMINS
     Indication: PRODUCT USED FOR UNKNOWN INDICATION
     Route: 065
  8. POTASSIUM CHLORIDE. [Concomitant]
     Active Substance: POTASSIUM CHLORIDE
     Indication: PRODUCT USED FOR UNKNOWN INDICATION
     Dosage: 10 MEQ, UNK
     Route: 065
  9. POTASSIUM CLAVULANATE [Concomitant]
     Active Substance: CLAVULANATE POTASSIUM
     Indication: PRODUCT USED FOR UNKNOWN INDICATION
     Route: 065
  10. ASPIRIN. [Concomitant]
     Active Substance: ASPIRIN
     Indication: PRODUCT USED FOR UNKNOWN INDICATION
     Route: 065
  11. JAKAFI [Suspect]
     Active Substance: RUXOLITINIB
     Indication: MYELOFIBROSIS
     Dosage: 15 MG, QD
     Route: 065
  12. JAKAFI [Suspect]
     Active Substance: RUXOLITINIB
     Dosage: 20 MG, QD
     Route: 048
     Dates: start: 20170821
  13. JAKAFI [Suspect]
     Active Substance: RUXOLITINIB
     Dosage: 10 MG, BID
     Route: 065
     Dates: start: 201708
  14. EXELON [Suspect]
     Active Substance: RIVASTIGMINE TARTRATE
     Indication: PRODUCT USED FOR UNKNOWN INDICATION
     Dosage: UNK
     Route: 065
     Dates: start: 2000
  15. VITAMIN B12 [Concomitant]
     Active Substance: CYANOCOBALAMIN
     Indication: PRODUCT USED FOR UNKNOWN INDICATION
     Dosage: 1000 MCG, UNK
     Route: 065
  16. CALCIUM CITRATE [Concomitant]
     Active Substance: CALCIUM CITRATE
     Indication: PRODUCT USED FOR UNKNOWN INDICATION
     Route: 065
  17. CALCITRATE PLUS D [Concomitant]
     Indication: PRODUCT USED FOR UNKNOWN INDICATION
     Dosage: 315 MG - 250 UNIT
     Route: 065
  18. LASIX [Concomitant]
     Active Substance: FUROSEMIDE
     Indication: PRODUCT USED FOR UNKNOWN INDICATION
     Dosage: 20 MG, UNK
     Route: 065
  19. METHIMAZOLE. [Concomitant]
     Active Substance: METHIMAZOLE
     Indication: PRODUCT USED FOR UNKNOWN INDICATION
     Dosage: 5 MG, UNK
     Route: 065
  20. BENADRYL [Concomitant]
     Active Substance: DIPHENHYDRAMINE HYDROCHLORIDE
     Indication: PRODUCT USED FOR UNKNOWN INDICATION
     Dosage: UNK
     Route: 065
  21. JAKAFI [Suspect]
     Active Substance: RUXOLITINIB
     Dosage: 5 MG, BID
     Route: 065
     Dates: start: 2017
  22. THIAMAZOLE [Concomitant]
     Active Substance: METHIMAZOLE
     Indication: PRODUCT USED FOR UNKNOWN INDICATION
     Dosage: UNK
     Route: 065
  23. FLEXERIL [Concomitant]
     Active Substance: CYCLOBENZAPRINE HYDROCHLORIDE
     Dosage: 10 MG, UNK
     Route: 065
  24. AMITIZA [Concomitant]
     Active Substance: LUBIPROSTONE
     Indication: PRODUCT USED FOR UNKNOWN INDICATION
     Dosage: 24 MCG, UNK
     Route: 065
  25. CYCLOBENZAPRINE. [Concomitant]
     Active Substance: CYCLOBENZAPRINE
     Indication: PRODUCT USED FOR UNKNOWN INDICATION
     Dosage: 10 MG, UNK
     Route: 065
  26. ANASTROZOLE. [Suspect]
     Active Substance: ANASTROZOLE
     Indication: INTRADUCTAL PROLIFERATIVE BREAST LESION
     Dosage: 1 MG, UNK
     Route: 065
     Dates: start: 2017
  27. LYRICA [Suspect]
     Active Substance: PREGABALIN
     Indication: PRODUCT USED FOR UNKNOWN INDICATION
     Dosage: 50 MG, BID
     Route: 048
  28. FLEXERIL [Concomitant]
     Active Substance: CYCLOBENZAPRINE HYDROCHLORIDE
     Indication: PRODUCT USED FOR UNKNOWN INDICATION
     Dosage: UNK, ONCE IN A WHILE
     Route: 065
  29. LORAZEPAM. [Concomitant]
     Active Substance: LORAZEPAM
     Indication: PRODUCT USED FOR UNKNOWN INDICATION
     Dosage: 0.5 MG, UNK
     Route: 065
  30. TRAMADOL. [Concomitant]
     Active Substance: TRAMADOL
     Indication: PRODUCT USED FOR UNKNOWN INDICATION
     Dosage: UNK
     Route: 065
  31. JAKAFI [Suspect]
     Active Substance: RUXOLITINIB
     Dosage: 2.5 MG, BID
     Route: 065
     Dates: start: 201803, end: 20180324
  32. JAKAFI [Suspect]
     Active Substance: RUXOLITINIB
     Dosage: 10 MG DAILY ALTERNATING WITH 5 MG
     Route: 065
     Dates: start: 20180523
  33. BABY ASPIRIN [Concomitant]
     Active Substance: ASPIRIN
     Indication: PRODUCT USED FOR UNKNOWN INDICATION
     Dosage: UNK
     Route: 065
  34. DONEPEZIL. [Concomitant]
     Active Substance: DONEPEZIL
     Indication: PRODUCT USED FOR UNKNOWN INDICATION
     Dosage: 5 MG, UNK
     Route: 065
  35. ATENOLOL. [Concomitant]
     Active Substance: ATENOLOL
     Indication: PRODUCT USED FOR UNKNOWN INDICATION
     Dosage: 25 MG, QD
     Route: 065
  36. JAKAFI [Suspect]
     Active Substance: RUXOLITINIB
     Dosage: 15 MG, QAM (10 MG TABLETS QAM AND 5 MG QPM)
     Route: 065
  37. JAKAFI [Suspect]
     Active Substance: RUXOLITINIB
     Dosage: 10 MG, QD
     Route: 065
     Dates: start: 2017, end: 2017
  38. IRON [Concomitant]
     Active Substance: IRON
     Indication: PRODUCT USED FOR UNKNOWN INDICATION
     Route: 065

REACTIONS (41)
  - Eating disorder [Recovering/Resolving]
  - Leukocytosis [Unknown]
  - Neutrophilia [Unknown]
  - Urinary incontinence [Unknown]
  - Mean cell volume decreased [Unknown]
  - Inappropriate schedule of product administration [Unknown]
  - Post procedural swelling [Recovered/Resolved]
  - Pain [Unknown]
  - Blood count abnormal [Recovering/Resolving]
  - Post procedural haematoma [Unknown]
  - Nasopharyngitis [Recovered/Resolved]
  - Headache [Unknown]
  - Dyspnoea at rest [Unknown]
  - Myelofibrosis [Unknown]
  - Poor quality sleep [Unknown]
  - Dyspnoea exertional [Unknown]
  - Red blood cell count decreased [Unknown]
  - Arthralgia [Unknown]
  - Therapeutic response decreased [Unknown]
  - Abdominal pain [Recovering/Resolving]
  - Deficiency anaemia [Unknown]
  - Splenomegaly [Unknown]
  - Asthenia [Unknown]
  - Fatigue [Unknown]
  - Abdominal distension [Unknown]
  - Myalgia [Unknown]
  - Haemoglobin decreased [Unknown]
  - Incorrect dose administered [Unknown]
  - Chronic kidney disease [Unknown]
  - Malaise [Recovered/Resolved]
  - Platelet count increased [Unknown]
  - Therapeutic response unexpected [Unknown]
  - Back disorder [Unknown]
  - Contusion [Recovered/Resolved]
  - Haemorrhage [Unknown]
  - Iron deficiency [Unknown]
  - Platelet count abnormal [Unknown]
  - Oedema peripheral [Unknown]
  - Diarrhoea [Unknown]
  - Dizziness [Unknown]
  - Body height decreased [Unknown]

NARRATIVE: CASE EVENT DATE: 20181223
